FAERS Safety Report 24261685 (Version 1)
Quarter: 2024Q3

REPORT INFORMATION
  Report Type: Spontaneous
  Country: US (occurrence: US)
  Receive Date: 20240829
  Receipt Date: 20240829
  Transmission Date: 20241017
  Serious: Yes (Hospitalization, Disabling, Other)
  Sender: CHEPLAPHARM
  Company Number: US-AstraZeneca-2024A187216

PATIENT
  Sex: Female

DRUGS (1)
  1. BUDESONIDE [Suspect]
     Active Substance: BUDESONIDE
     Dosage: RESPIRATORY INHALATION
     Route: 055

REACTIONS (11)
  - Deafness [Unknown]
  - Infection [Unknown]
  - Asthenia [Unknown]
  - Joint contracture [Unknown]
  - Neurodevelopmental disorder [Unknown]
  - Hypotonia [Unknown]
  - Neuropathy peripheral [Unknown]
  - Chronic respiratory disease [Unknown]
  - Developmental delay [Unknown]
  - Dysphagia [Unknown]
  - Neuromuscular scoliosis [Unknown]
